FAERS Safety Report 25245079 (Version 1)
Quarter: 2025Q2

REPORT INFORMATION
  Report Type: Spontaneous
  Country: US (occurrence: None)
  Receive Date: 20250423
  Receipt Date: 20250423
  Transmission Date: 20250717
  Serious: Yes (Hospitalization)
  Sender: FDA-CTU
  Company Number: None

PATIENT
  Age: 27 Year
  Sex: Female
  Weight: 95 kg

DRUGS (2)
  1. NIVOLUMAB [Suspect]
     Active Substance: NIVOLUMAB
     Indication: Malignant melanoma
     Dosage: FREQUENCY : EVERY THREE WEEKS;?
  2. IPILIMUMAB [Concomitant]
     Active Substance: IPILIMUMAB

REACTIONS (4)
  - Flushing [None]
  - Dizziness [None]
  - Feeling hot [None]
  - Nausea [None]

NARRATIVE: CASE EVENT DATE: 20250409
